FAERS Safety Report 24658667 (Version 1)
Quarter: 2024Q4

REPORT INFORMATION
  Report Type: Spontaneous
  Country: GR (occurrence: GR)
  Receive Date: 20241125
  Receipt Date: 20241125
  Transmission Date: 20250115
  Serious: Yes (Other)
  Sender: MYLAN
  Company Number: GR-BRISTOL-MYERS SQUIBB COMPANY-2024-134645

PATIENT
  Age: 79 Year
  Sex: Male

DRUGS (9)
  1. LENALIDOMIDE [Suspect]
     Active Substance: LENALIDOMIDE
     Indication: 5q minus syndrome
     Dosage: 10 MILLIGRAM, EVERY 1.33 DAYS
     Route: 065
  2. LENALIDOMIDE [Suspect]
     Active Substance: LENALIDOMIDE
     Dosage: 10 MILLIGRAM, QD (FOR 21?DAYS IN 28-DAY CYCLES  )
     Route: 065
  3. DEFERASIROX [Suspect]
     Active Substance: DEFERASIROX
     Indication: 5q minus syndrome
     Dosage: UNK
     Route: 065
  4. AZACITIDINE [Suspect]
     Active Substance: AZACITIDINE
     Indication: 5q minus syndrome
     Dosage: UNK (5 CYCLES)
     Route: 065
  5. EPOETIN ALFA [Suspect]
     Active Substance: ERYTHROPOIETIN
     Indication: 5q minus syndrome
     Dosage: UNK
     Route: 065
  6. LUSPATERCEPT [Suspect]
     Active Substance: LUSPATERCEPT
     Indication: 5q minus syndrome
     Dosage: 1 MILLIGRAM/KILOGRAM (1?MG/KG, AND THE DOSE WAS INCREASED AFTER TWO 21-DAY CYCLES TO 1.33?MG/KG  )
     Route: 058
  7. LUSPATERCEPT [Suspect]
     Active Substance: LUSPATERCEPT
     Dosage: 1.33 MILLIGRAM/KILOGRAM
     Route: 058
  8. FILGRASTIM [Suspect]
     Active Substance: FILGRASTIM
     Indication: 5q minus syndrome
     Dosage: UNK
     Route: 065
  9. DEFERASIROX [Concomitant]
     Active Substance: DEFERASIROX
     Indication: 5q minus syndrome
     Dosage: UNK
     Route: 065

REACTIONS (5)
  - Neutropenia [Recovering/Resolving]
  - Thrombocytopenia [Recovering/Resolving]
  - Anaemia [Recovering/Resolving]
  - Drug ineffective [Unknown]
  - Off label use [Unknown]
